FAERS Safety Report 17021030 (Version 1)
Quarter: 2019Q4

REPORT INFORMATION
  Report Type: Report from Study
  Country: FR (occurrence: FR)
  Receive Date: 20191112
  Receipt Date: 20191112
  Transmission Date: 20200122
  Serious: Yes (Death, Hospitalization, Other)
  Sender: FDA-Public Use
  Company Number: FR-PFIZER INC-2019485925

PATIENT
  Sex: Male
  Weight: 80 kg

DRUGS (4)
  1. ZAVICEFTA [Suspect]
     Active Substance: AVIBACTAM SODIUM\CEFTAZIDIME
     Dosage: UNK
  2. ATRACURIUM BESILATE [Suspect]
     Active Substance: ATRACURIUM BESYLATE
     Dosage: UNK
  3. CYCLOPHOSPHAMIDE. [Suspect]
     Active Substance: CYCLOPHOSPHAMIDE
     Dosage: UNK
  4. DEFITELIO [Suspect]
     Active Substance: DEFIBROTIDE SODIUM
     Indication: VENOOCCLUSIVE DISEASE
     Dosage: 25 MG/KG, DAILY
     Dates: start: 20180615, end: 20180704

REACTIONS (14)
  - Bacteraemia [Fatal]
  - Cystitis haemorrhagic [Unknown]
  - Atrial fibrillation [Unknown]
  - Cardiotoxicity [Fatal]
  - Splenic candidiasis [Fatal]
  - Acute pulmonary oedema [Fatal]
  - Encephalopathy [Fatal]
  - Immunodeficiency [Unknown]
  - Clostridium difficile colitis [Fatal]
  - Pneumonia klebsiella [Fatal]
  - Anaphylactic shock [Unknown]
  - Multiple organ dysfunction syndrome [Fatal]
  - Sepsis [Fatal]
  - Fungaemia [Fatal]

NARRATIVE: CASE EVENT DATE: 20180707
